FAERS Safety Report 7253541-6 (Version None)
Quarter: 2011Q1

REPORT INFORMATION
  Report Type: 
  Country: None (occurrence: None)
  Receive Date: 20110129
  Receipt Date: 20100401
  Transmission Date: 20110831
  Serious: Yes (Other)
  Sender: FDA-Public Use
  Company Number: US-ABBOTT-10P-163-0635875-00

PATIENT
  Sex: Male
  Weight: 93.07 kg

DRUGS (4)
  1. HYDROCODONE [Concomitant]
     Indication: ARTHRALGIA
     Dosage: 5-500 MG AS NEEDED
     Dates: start: 20091201, end: 20100301
  2. NORVASC [Concomitant]
     Indication: PRODUCT USED FOR UNKNOWN INDICATION
  3. TRAMADOL HCL [Concomitant]
     Indication: PRODUCT USED FOR UNKNOWN INDICATION
     Dates: start: 20100112
  4. HUMIRA [Suspect]
     Indication: PSORIATIC ARTHROPATHY
     Dates: start: 20030101

REACTIONS (2)
  - HEPATIC ENZYME INCREASED [None]
  - CATARACT [None]
